FAERS Safety Report 19279496 (Version 1)
Quarter: 2021Q2

REPORT INFORMATION
  Report Type: Spontaneous
  Country: ES (occurrence: ES)
  Receive Date: 20210520
  Receipt Date: 20210520
  Transmission Date: 20210717
  Serious: Yes (Hospitalization, Other)
  Sender: FDA-Public Use
  Company Number: ES-SA-2021SA163811

PATIENT
  Age: 65 Year
  Sex: Male

DRUGS (2)
  1. OXALIPLATIN. [Suspect]
     Active Substance: OXALIPLATIN
     Indication: COLORECTAL ADENOCARCINOMA
     Dosage: 1 DF, QOW (1 DOSE EVERY 14 DAYS AT THE BEGINNING OF EACH CYCLE)
     Route: 042
     Dates: start: 20201215, end: 20210303
  2. CAPECITABINE. [Suspect]
     Active Substance: CAPECITABINE
     Indication: ADENOCARCINOMA OF COLON
     Dosage: 1800 MG, BID
     Route: 048
     Dates: start: 20201215, end: 20210303

REACTIONS (1)
  - Enterocolitis [Recovered/Resolved]
